FAERS Safety Report 17094172 (Version 2)
Quarter: 2019Q4

REPORT INFORMATION
  Report Type: Spontaneous
  Country: CN (occurrence: CN)
  Receive Date: 20191129
  Receipt Date: 20191202
  Transmission Date: 20200122
  Serious: Yes (Other)
  Sender: FDA-Public Use
  Company Number: CN-009507513-1911CHN008849

PATIENT
  Age: 61 Year
  Sex: Male
  Weight: 66 kg

DRUGS (1)
  1. PROSCAR [Suspect]
     Active Substance: FINASTERIDE
     Indication: DIHYDROTESTOSTERONE INCREASED
     Dosage: 5 MILLIGRAM, QD
     Route: 048
     Dates: start: 20191106, end: 20191106

REACTIONS (2)
  - Dizziness [Recovering/Resolving]
  - Vomiting [Recovering/Resolving]

NARRATIVE: CASE EVENT DATE: 20191106
